FAERS Safety Report 8876351 (Version 1)
Quarter: 2012Q4

REPORT INFORMATION
  Report Type: 
  Country: CA (occurrence: CA)
  Receive Date: 20121031
  Receipt Date: 20121031
  Transmission Date: 20130627
  Serious: Yes (Hospitalization, Other)
  Sender: FDA-Public Use
  Company Number: PHMT2007CA00597

PATIENT
  Sex: Male

DRUGS (5)
  1. SANDOSTATIN LAR [Suspect]
     Indication: SMALL INTESTINE CARCINOMA
     Dosage: 30 mg once a month
     Route: 030
     Dates: start: 20060727
  2. SANDOSTATIN LAR [Suspect]
     Dosage: 10 mg, QMO
     Route: 030
     Dates: end: 20070502
  3. SANDOSTATIN [Suspect]
     Dosage: TID
     Route: 058
     Dates: start: 20070709
  4. VITAMIN B12 [Concomitant]
  5. MORPHINE [Concomitant]
     Dosage: 5 mg PRN

REACTIONS (6)
  - Intestinal obstruction [Unknown]
  - Abdominal pain [Not Recovered/Not Resolved]
  - Vomiting [Unknown]
  - Anaemia [Unknown]
  - Blood pressure increased [Unknown]
  - Heart rate increased [Unknown]
